FAERS Safety Report 12326787 (Version 4)
Quarter: 2016Q4

REPORT INFORMATION
  Report Type: Spontaneous
  Country: US (occurrence: US)
  Receive Date: 20160503
  Receipt Date: 20161006
  Transmission Date: 20170207
  Serious: No
  Sender: FDA-Public Use
  Company Number: US-PFIZER INC-2016204697

PATIENT
  Age: 61 Year
  Sex: Female
  Weight: 114 kg

DRUGS (16)
  1. TRAMADOL. [Concomitant]
     Active Substance: TRAMADOL
     Indication: PAIN
     Dosage: UNK
     Dates: start: 2011
  2. LYRICA [Suspect]
     Active Substance: PREGABALIN
     Indication: PAIN IN EXTREMITY
     Dosage: 50 MG, 2X/DAY, EVERY 12 HOURS
     Route: 048
     Dates: start: 20160404, end: 20160406
  3. TRAMADOL. [Concomitant]
     Active Substance: TRAMADOL
     Dosage: 50MG CAPLETS BY MOUTH TWO EVERY 6 HOURS
     Route: 048
     Dates: start: 2012
  4. CLONIDINE. [Concomitant]
     Active Substance: CLONIDINE
     Indication: HEART DISEASE CONGENITAL
     Dosage: UNK
     Dates: start: 2011
  5. AMLODIPINE [Concomitant]
     Active Substance: AMLODIPINE BESYLATE
     Dosage: 10 MG, 1X/DAY, AT NIGHT
     Dates: start: 2014
  6. GLIPIZIDE/METFORMIN [Concomitant]
     Active Substance: GLIPIZIDE\METFORMIN HYDROCHLORIDE
     Dosage: UNK
     Dates: start: 2012
  7. TYLENOL [Concomitant]
     Active Substance: ACETAMINOPHEN
     Dosage: UNK
     Dates: start: 2006
  8. LYRICA [Suspect]
     Active Substance: PREGABALIN
     Dosage: 10 MG, 2X/DAY
  9. DIAZEPAM. [Concomitant]
     Active Substance: DIAZEPAM
     Indication: DEPRESSION
     Dosage: 5 MG, 3X/DAY
     Route: 048
     Dates: start: 1985
  10. AMLODIPINE [Concomitant]
     Active Substance: AMLODIPINE BESYLATE
     Indication: CARDIAC DISORDER
     Dosage: UNK
     Dates: start: 2011
  11. LYRICA [Suspect]
     Active Substance: PREGABALIN
     Indication: PSORIATIC ARTHROPATHY
     Dosage: UNK
     Dates: start: 2015
  12. DIAZEPAM. [Concomitant]
     Active Substance: DIAZEPAM
     Indication: STRESS
     Dosage: UNK
     Dates: start: 2008
  13. TALC [Suspect]
     Active Substance: TALC
     Dosage: UNK
  14. GLIPIZIDE/METFORMIN [Concomitant]
     Active Substance: GLIPIZIDE\METFORMIN HYDROCHLORIDE
     Indication: BLOOD GLUCOSE INCREASED
     Dosage: 2 DF, 2X/DAY, [GLIPIZIDE 5 MG]/[ METFORMIN HYDROCHLORIDE 500 MG], MORNING AND AFTERNOON
     Route: 048
     Dates: start: 2005
  15. CLONIDINE. [Concomitant]
     Active Substance: CLONIDINE
     Dosage: 0.1 MG, 2X/DAY
     Route: 048
     Dates: start: 2014
  16. TYLENOL [Concomitant]
     Active Substance: ACETAMINOPHEN
     Indication: ARTHRITIS
     Dosage: 650MG TWO TWICE A DAY
     Route: 048
     Dates: start: 1999

REACTIONS (9)
  - Vision blurred [Recovering/Resolving]
  - Therapeutic response unexpected [Unknown]
  - Rash [Recovering/Resolving]
  - Peripheral swelling [Recovered/Resolved]
  - Oral mucosal blistering [Recovering/Resolving]
  - Paraesthesia [Unknown]
  - Pre-existing condition improved [Unknown]
  - Blister [Recovering/Resolving]
  - Pollakiuria [Unknown]

NARRATIVE: CASE EVENT DATE: 20160404
